FAERS Safety Report 18859207 (Version 1)
Quarter: 2021Q1

REPORT INFORMATION
  Report Type: Spontaneous
  Country: US (occurrence: US)
  Receive Date: 20210207
  Receipt Date: 20210207
  Transmission Date: 20210420
  Serious: Yes (Other)
  Sender: FDA-Public Use
  Company Number: None

PATIENT
  Age: 50 Year
  Sex: Female
  Weight: 61 kg

DRUGS (1)
  1. REMDESIVIR  (REMDESIVIR 100MG/VIAL INJ) [Suspect]
     Active Substance: REMDESIVIR
     Indication: SEIZURE
     Route: 042
     Dates: start: 20201120, end: 20201121

REACTIONS (1)
  - Seizure [None]

NARRATIVE: CASE EVENT DATE: 20201121
